FAERS Safety Report 21498044 (Version 5)
Quarter: 2022Q4

REPORT INFORMATION
  Report Type: Spontaneous
  Country: US (occurrence: US)
  Receive Date: 20221024
  Receipt Date: 20221117
  Transmission Date: 20230113
  Serious: No
  Sender: FDA-Public Use
  Company Number: US-NOVARTISTESTPH-NVSC2022US238824

PATIENT

DRUGS (1)
  1. RECLAST [Suspect]
     Active Substance: ZOLEDRONIC ACID
     Indication: Osteoporosis
     Dosage: 5 MG, Q12MO
     Route: 065
     Dates: start: 20221005

REACTIONS (6)
  - Oedema [Unknown]
  - Nodule [Unknown]
  - Asthenia [Unknown]
  - Fatigue [Unknown]
  - Arthralgia [Unknown]
  - Infusion site reaction [Unknown]
